FAERS Safety Report 17396104 (Version 1)
Quarter: 2020Q1

REPORT INFORMATION
  Report Type: Spontaneous
  Country: CA (occurrence: CA)
  Receive Date: 20200207
  Receipt Date: 20200207
  Transmission Date: 20200409
  Serious: No
  Sender: FDA-Public Use
  Company Number: None

PATIENT
  Age: 70 Year
  Sex: Female
  Weight: 56.25 kg

DRUGS (7)
  1. CALCIUM [Concomitant]
     Active Substance: CALCIUM
  2. XARELTO [Concomitant]
     Active Substance: RIVAROXABAN
  3. TEVA SERTRALINE [Suspect]
     Active Substance: SERTRALINE HYDROCHLORIDE
     Indication: ANXIETY
     Dosage: ?          QUANTITY:60 CAPSULE(S);?
     Route: 048
     Dates: start: 20191122, end: 20200101
  4. PROBIOTIC [Concomitant]
     Active Substance: PROBIOTICS NOS
  5. METOPROLOL. [Concomitant]
     Active Substance: METOPROLOL
  6. VITAMIN D [Concomitant]
     Active Substance: VITAMIN D NOS
  7. MULTIVITAMIN [Concomitant]
     Active Substance: VITAMINS

REACTIONS (7)
  - Agitation [None]
  - Nausea [None]
  - Weight decreased [None]
  - Atrial fibrillation [None]
  - Tachycardia [None]
  - Anxiety [None]
  - Palpitations [None]

NARRATIVE: CASE EVENT DATE: 20200101
